FAERS Safety Report 5237020-3 (Version None)
Quarter: 2007Q1

REPORT INFORMATION
  Report Type: 
  Country: None (occurrence: None)
  Receive Date: 20070209
  Receipt Date: 20070126
  Transmission Date: 20070707
  Serious: Yes (Other)
  Sender: FDA-Public Use
  Company Number: ST-2007-009482

PATIENT
  Age: 71 Year
  Sex: Male
  Weight: 70.4 kg

DRUGS (1)
  1. OLEMTEC [Suspect]
     Indication: HYPERTENSION
     Dosage: 20 MG QD PO
     Route: 048
     Dates: start: 20051214, end: 20061205

REACTIONS (5)
  - DRUG ERUPTION [None]
  - EOSINOPHIL PERCENTAGE INCREASED [None]
  - GLOSSODYNIA [None]
  - LIP PAIN [None]
  - OCULAR HYPERAEMIA [None]
